FAERS Safety Report 9060480 (Version 2)
Quarter: 2013Q1

REPORT INFORMATION
  Report Type: Spontaneous
  Country: US (occurrence: US)
  Receive Date: 20130212
  Receipt Date: 20130218
  Transmission Date: 20140127
  Serious: Yes (Hospitalization, Other)
  Sender: FDA-Public Use
  Company Number: US-NOVOPROD-370678

PATIENT
  Age: 58 Year
  Sex: Male
  Weight: 110.66 kg

DRUGS (7)
  1. VICTOZA [Suspect]
     Indication: TYPE 2 DIABETES MELLITUS
     Dosage: 1.8 MG QD
     Route: 058
     Dates: start: 20110912, end: 20121210
  2. VICTOZA [Suspect]
     Dosage: 1.2 MG QD
     Route: 058
     Dates: end: 20110911
  3. VICTOZA [Suspect]
     Dosage: 0.6 MG QD
     Route: 058
     Dates: start: 201108
  4. LEVEMIR [Suspect]
     Indication: TYPE 2 DIABETES MELLITUS
     Dosage: 70 U QPM
     Route: 058
     Dates: start: 20120611
  5. LEVEMIR [Suspect]
     Dosage: 55 U QPM
     Route: 058
     Dates: start: 20120416, end: 20120610
  6. LEVEMIR [Suspect]
     Dosage: 5 U QPM
     Route: 058
     Dates: start: 20120307, end: 20120415
  7. METOPROLOL [Concomitant]
     Indication: HYPERTENSION
     Dosage: 25 MG BID
     Route: 048

REACTIONS (3)
  - Pancreatitis [Recovered/Resolved]
  - Pancreatitis acute [Recovered/Resolved]
  - Cholelithiasis [Recovered/Resolved]
